FAERS Safety Report 8567100 (Version 4)
Quarter: 2012Q4

REPORT INFORMATION
  Report Type: 
  Country: US (occurrence: US)
  Receive Date: 20120517
  Receipt Date: 20121207
  Transmission Date: 20130627
  Serious: Yes (Hospitalization, Other)
  Sender: FDA-Public Use
  Company Number: US-VIROPHARMA INCORPORATED-20120303CINRY2706

PATIENT
  Age: 40 None
  Sex: Female

DRUGS (22)
  1. CINRYZE (C1 ESTERASE INHIBITOR (HUMAN)) [Suspect]
     Indication: HEREDITARY ANGIOEDEMA
     Dates: start: 20100525, end: 20100728
  2. CINRYZE (C1 ESTERASE INHIBITOR (HUMAN)) [Suspect]
     Dates: start: 20100729, end: 20110302
  3. CINRYZE (C1 ESTERASE INHIBITOR (HUMAN)) [Suspect]
     Dates: start: 20110303, end: 201104
  4. CINRYZE (C1 ESTERASE INHIBITOR (HUMAN)) [Suspect]
     Dates: start: 201104
  5. CINRYZE (C1 ESTERASE INHIBITOR (HUMAN)) [Suspect]
     Dosage: unknown
  6. PROTONIX [Concomitant]
     Indication: PRODUCT USED FOR UNKNOWN INDICATION
     Dosage: UNKNOWN
     Route: 048
     Dates: start: 20100730
  7. EFFEXOR [Concomitant]
     Indication: DEPRESSION
     Dosage: UNKNOWN
     Route: 048
     Dates: start: 20100730
  8. PLAQUENIL [Concomitant]
     Indication: SYSTEMIC LUPUS ERYTHEMATOSUS
     Dosage: UNKNOWN
     Route: 048
     Dates: start: 20100730
  9. SINEQUAN [Concomitant]
     Indication: DEPRESSION
     Dosage: UNKNOWN
     Route: 048
     Dates: start: 20100730
  10. BENTYL [Concomitant]
     Indication: PRODUCT USED FOR UNKNOWN INDICATION
     Dosage: UNKNOWN
     Route: 065
  11. CELLCEPT [Concomitant]
     Indication: SYSTEMIC LUPUS ERYTHEMATOSUS
     Dosage: unknown
     Route: 065
  12. DARVOCET N 100 [Concomitant]
     Indication: PAIN
     Dosage: UNKNOWN
     Route: 048
     Dates: start: 20100730
  13. PREDNISONE [Concomitant]
     Indication: PRODUCT USED FOR UNKNOWN INDICATION
     Dosage: UNKNOWN
     Route: 048
     Dates: start: 20100730
  14. VICODIN [Concomitant]
     Indication: PAIN
     Dosage: 5-500 MG
     Route: 048
     Dates: start: 20100730
  15. SOMA [Concomitant]
     Indication: PRODUCT USED FOR UNKNOWN INDICATION
     Dosage: UNKNOWN
     Route: 048
     Dates: start: 20100730
  16. NORCO [Concomitant]
     Indication: PAIN
     Dosage: 10-325 MG
     Route: 048
     Dates: start: 20100730
  17. ALDACTONE [Concomitant]
     Indication: ESSENTIAL HYPERTENSION
     Dosage: UNKNOWN
     Route: 048
     Dates: start: 20100730
  18. XANAX [Concomitant]
     Indication: DEPRESSION
     Dosage: UNKNOWN
     Route: 048
     Dates: start: 20100730
  19. VALTREX [Concomitant]
     Indication: PRODUCT USED FOR UNKNOWN INDICATION
     Dosage: UNKNOWN
     Route: 048
     Dates: start: 20100730
  20. ALBUTEROL [Concomitant]
     Indication: DYSPNOEA
     Dosage: UNKNOWN
     Dates: start: 20100730
  21. FIRAZYR [Concomitant]
     Indication: HEREDITARY ANGIOEDEMA
     Dosage: UNKNOWN
     Route: 065
  22. LASIX [Concomitant]
     Indication: PRODUCT USED FOR UNKNOWN INDICATION
     Dosage: unknown
     Route: 065

REACTIONS (10)
  - Sepsis [Unknown]
  - Lupus nephritis [Unknown]
  - Device related infection [Unknown]
  - Renal impairment [Unknown]
  - Hereditary angioedema [Not Recovered/Not Resolved]
  - Condition aggravated [Not Recovered/Not Resolved]
  - Inappropriate schedule of drug administration [Recovered/Resolved]
  - Staphylococcal infection [Unknown]
  - General physical health deterioration [Unknown]
  - Unevaluable event [Unknown]
